FAERS Safety Report 8443860-X (Version None)
Quarter: 2012Q2

REPORT INFORMATION
  Report Type: 
  Country: None (occurrence: None)
  Receive Date: 20120618
  Receipt Date: 20120607
  Transmission Date: 20120825
  Serious: Yes (Other)
  Sender: FDA-Public Use
  Company Number: US-US-EMD SERONO, INC.-7139040

PATIENT
  Sex: Female
  Weight: 57 kg

DRUGS (3)
  1. NUEDEXTA [Concomitant]
     Indication: DEPRESSION
  2. AMPYRA [Concomitant]
     Indication: PRODUCT USED FOR UNKNOWN INDICATION
  3. REBIF [Suspect]
     Indication: PRODUCT USED FOR UNKNOWN INDICATION
     Route: 058
     Dates: start: 20090927

REACTIONS (8)
  - DEPRESSION [None]
  - MULTIPLE SCLEROSIS RELAPSE [None]
  - PAIN [None]
  - FALL [None]
  - DRUG DEPENDENCE [None]
  - INAPPROPRIATE AFFECT [None]
  - HEADACHE [None]
  - INJECTION SITE PAIN [None]
